FAERS Safety Report 5289755-4 (Version None)
Quarter: 2007Q2

REPORT INFORMATION
  Report Type: 
  Country: None (occurrence: None)
  Receive Date: 20070406
  Receipt Date: 20070327
  Transmission Date: 20071010
  Serious: Yes (Hospitalization)
  Sender: FDA-Public Use
  Company Number: US-AMGEN-KDL215044

PATIENT
  Sex: Female
  Weight: 91.7 kg

DRUGS (10)
  1. EPOGEN [Suspect]
     Indication: HEPATITIS C
     Route: 058
     Dates: start: 20061011, end: 20070314
  2. RIBAVIRIN [Concomitant]
  3. PEGASYS [Concomitant]
  4. ZESTRIL [Concomitant]
     Dates: start: 20010928
  5. TOPROL-XL [Concomitant]
     Dates: start: 20010928
  6. HYDROCHLOROTHIAZIDE [Concomitant]
     Dates: start: 20011215
  7. ZETIA [Concomitant]
     Dates: start: 20011218
  8. DILTIAZEM [Concomitant]
     Dates: start: 20031017
  9. CLONIDINE [Concomitant]
     Dates: start: 20061222
  10. LORATADINE [Concomitant]
     Dates: start: 20051123

REACTIONS (1)
  - ANAEMIA [None]
